FAERS Safety Report 6059478-2 (Version None)
Quarter: 2009Q1

REPORT INFORMATION
  Report Type: 
  Country: None (occurrence: None)
  Receive Date: 20090130
  Receipt Date: 20090106
  Transmission Date: 20090719
  Serious: Yes (Hospitalization)
  Sender: FDA-Public Use
  Company Number: IE-PFIZER INC-2009152078

PATIENT

DRUGS (9)
  1. LYRICA [Suspect]
     Indication: GENERALISED ANXIETY DISORDER
     Dosage: 25 MG, 2X/DAY
     Route: 048
     Dates: start: 20081030, end: 20081126
  2. HALCION [Concomitant]
     Indication: INSOMNIA
     Dosage: 0.25 MG, UNK
  3. ZISPIN [Concomitant]
     Indication: DEPRESSION
     Dosage: 30 MG OR 45 MG
     Dates: start: 20060101
  4. ZISPIN [Concomitant]
     Indication: ANXIETY
  5. ZISPIN [Concomitant]
     Indication: PANIC ATTACK
  6. XANAX [Concomitant]
  7. FOLIC ACID [Concomitant]
  8. PARIET [Concomitant]
     Indication: DYSPEPSIA
     Dosage: 10 MG, UNK
     Route: 048
  9. PARIET [Concomitant]
     Indication: HYPERCHLORHYDRIA

REACTIONS (3)
  - CONTUSION [None]
  - PURPURA [None]
  - THROMBOCYTOPENIA [None]
